FAERS Safety Report 17513415 (Version 2)
Quarter: 2020Q3

REPORT INFORMATION
  Report Type: Spontaneous
  Country: CA (occurrence: CA)
  Receive Date: 20200306
  Receipt Date: 20200805
  Transmission Date: 20201102
  Serious: Yes (Hospitalization)
  Sender: FDA-Public Use
  Company Number: CA-EMD SERONO-9148912

PATIENT
  Age: 36 Year
  Sex: Male

DRUGS (4)
  1. MAVENCLAD [Suspect]
     Active Substance: CLADRIBINE
     Indication: RELAPSING-REMITTING MULTIPLE SCLEROSIS
     Dosage: FIRST YEAR FIRST MONTH TREATMENT
     Route: 048
     Dates: start: 201803
  2. MAVENCLAD [Suspect]
     Active Substance: CLADRIBINE
     Dosage: SECOND YEAR TREATMENT
     Route: 048
     Dates: end: 20190707
  3. VITAMIN D                          /00107901/ [Concomitant]
     Active Substance: ERGOCALCIFEROL
     Indication: VITAMIN D DEFICIENCY
  4. MAVENCLAD [Suspect]
     Active Substance: CLADRIBINE
     Dosage: FIRST YEAR SECOND MONTH TREATMENT
     Route: 048
     Dates: end: 201804

REACTIONS (11)
  - Paraesthesia [Recovered/Resolved]
  - Functional gastrointestinal disorder [Recovered/Resolved]
  - Herpes zoster meningitis [Recovered/Resolved]
  - Lymphocyte count increased [Recovered/Resolved]
  - Lymphocyte count decreased [Recovering/Resolving]
  - Fatigue [Recovered/Resolved]
  - Headache [Recovered/Resolved]
  - Musculoskeletal stiffness [Recovered/Resolved]
  - Photophobia [Recovered/Resolved]
  - Herpes zoster [Unknown]
  - Depressed mood [Recovered/Resolved]

NARRATIVE: CASE EVENT DATE: 201907
